FAERS Safety Report 8290349-7 (Version None)
Quarter: 2012Q2

REPORT INFORMATION
  Report Type: 
  Country: None (occurrence: None)
  Receive Date: 20120413
  Receipt Date: 20120413
  Transmission Date: 20120825
  Serious: Yes (Disabling, Other)
  Sender: FDA-Public Use
  Company Number: None

PATIENT
  Age: 49 Year
  Sex: Female
  Weight: 72.5755 kg

DRUGS (1)
  1. LISINOPRIL [Suspect]
     Indication: HYPERTENSION
     Dosage: 5 MG 1 DAILY
     Dates: start: 20111215, end: 20120315

REACTIONS (8)
  - HYPERHIDROSIS [None]
  - OROPHARYNGEAL PAIN [None]
  - LACRIMATION INCREASED [None]
  - DYSPNOEA [None]
  - PAIN [None]
  - VOMITING [None]
  - COUGH [None]
  - DYSPHONIA [None]
